FAERS Safety Report 19778613 (Version 1)
Quarter: 2021Q3

REPORT INFORMATION
  Report Type: Spontaneous
  Country: US (occurrence: US)
  Receive Date: 20210902
  Receipt Date: 20210902
  Transmission Date: 20211014
  Serious: Yes (Other)
  Sender: FDA-Public Use
  Company Number: US-GLAXOSMITHKLINE-US2021GSK186891

PATIENT
  Sex: Female

DRUGS (14)
  1. RANITIDINE HYDROCHLORIDE. [Suspect]
     Active Substance: RANITIDINE HYDROCHLORIDE
     Indication: DYSPEPSIA
     Dosage: 75 MG, QD,PERIODS OF NON?USE (AT LEAST 3 WEEKS WITHOUT USE)
     Route: 065
     Dates: start: 200201, end: 201801
  2. RANITIDINE HYDROCHLORIDE. [Suspect]
     Active Substance: RANITIDINE HYDROCHLORIDE
     Indication: GASTROOESOPHAGEAL REFLUX DISEASE
     Dosage: 150 MG, QD,PERIODS OF NON?USE (AT LEAST 3 WEEKS WITHOUT USE)
     Route: 065
     Dates: start: 200201, end: 201801
  3. RANITIDINE. [Suspect]
     Active Substance: RANITIDINE
     Indication: GASTROOESOPHAGEAL REFLUX DISEASE
     Dosage: 150 MG, QD,75 MG, QD,PERIODS OF NON?USE (AT LEAST 3 WEEKS WITHOUT USE)
     Route: 065
     Dates: start: 200201, end: 201801
  4. RANITIDINE CAPSULE [Suspect]
     Active Substance: RANITIDINE
     Indication: DYSPEPSIA
     Dosage: 75 MG, QD,PERIODS OF NON?USE (AT LEAST 3 WEEKS WITHOUT USE)
     Route: 065
     Dates: start: 200201, end: 201801
  5. RANITIDINE. [Suspect]
     Active Substance: RANITIDINE
     Indication: DYSPEPSIA
     Dosage: 75 MG, QD,PERIODS OF NON?USE (AT LEAST 3 WEEKS WITHOUT USE)
     Route: 065
     Dates: start: 200201, end: 201801
  6. RANITIDINE CAPSULE [Suspect]
     Active Substance: RANITIDINE
     Indication: GASTROOESOPHAGEAL REFLUX DISEASE
     Dosage: 150 MG, QD,75 MG, QD,PERIODS OF NON?USE (AT LEAST 3 WEEKS WITHOUT USE)
     Route: 065
     Dates: start: 200201, end: 201801
  7. ZANTAC [Suspect]
     Active Substance: RANITIDINE HYDROCHLORIDE
     Indication: GASTROOESOPHAGEAL REFLUX DISEASE
  8. RANITIDINE HYDROCHLORIDE. [Suspect]
     Active Substance: RANITIDINE HYDROCHLORIDE
     Indication: GASTROOESOPHAGEAL REFLUX DISEASE
     Dosage: 150 MG, QD,75 MG, QD,PERIODS OF NON?USE (AT LEAST 3 WEEKS WITHOUT USE)
     Route: 065
     Dates: start: 200201, end: 201801
  9. RANITIDINE HYDROCHLORIDE. [Suspect]
     Active Substance: RANITIDINE HYDROCHLORIDE
     Indication: DYSPEPSIA
     Dosage: 75 MG, QD,PERIODS OF NON?USE (AT LEAST 3 WEEKS WITHOUT USE)
     Route: 065
     Dates: start: 200201, end: 201801
  10. ZANTAC [Suspect]
     Active Substance: RANITIDINE HYDROCHLORIDE
     Indication: DYSPEPSIA
     Dosage: 150 MG, QD,75 MG, QD,PERIODS OF NON?USE (AT LEAST 3 WEEKS WITHOUT USE)
     Route: 065
     Dates: start: 200201, end: 201801
  11. ZANTAC [Suspect]
     Active Substance: RANITIDINE HYDROCHLORIDE
     Indication: DYSPEPSIA
     Dosage: 150 MG, QD,75 MG, QD,PERIODS OF NON?USE (AT LEAST 3 WEEKS WITHOUT USE)
     Route: 065
     Dates: start: 200201, end: 201801
  12. ZANTAC [Suspect]
     Active Substance: RANITIDINE HYDROCHLORIDE
     Indication: GASTROOESOPHAGEAL REFLUX DISEASE
  13. ZANTAC [Suspect]
     Active Substance: RANITIDINE HYDROCHLORIDE
     Indication: DYSPEPSIA
     Dosage: 150 MG, QD,75 MG, QD,PERIODS OF NON?USE (AT LEAST 3 WEEKS WITHOUT USE)
     Route: 065
     Dates: start: 200201, end: 201801
  14. ZANTAC [Suspect]
     Active Substance: RANITIDINE HYDROCHLORIDE
     Indication: GASTROOESOPHAGEAL REFLUX DISEASE

REACTIONS (2)
  - Breast cancer [Unknown]
  - Tissue injury [Unknown]
